FAERS Safety Report 17861721 (Version 1)
Quarter: 2020Q2

REPORT INFORMATION
  Report Type: Spontaneous
  Country: US (occurrence: US)
  Receive Date: 20200604
  Receipt Date: 20200604
  Transmission Date: 20200714
  Serious: No
  Sender: FDA-Public Use
  Company Number: US-BAYER-2020-100665

PATIENT
  Age: 35 Year
  Sex: Female

DRUGS (2)
  1. ESTARYLLA [Concomitant]
     Active Substance: ETHINYL ESTRADIOL\NORGESTIMATE
  2. ALEVE PM [Suspect]
     Active Substance: DIPHENHYDRAMINE HYDROCHLORIDE\NAPROXEN SODIUM
     Indication: PAIN
     Dosage: 2 DF
     Route: 048
     Dates: start: 201910

REACTIONS (6)
  - Mass [Unknown]
  - Pruritus [Unknown]
  - Throat tightness [Unknown]
  - Erythema [Unknown]
  - Hypoaesthesia [Unknown]
  - Swelling face [None]

NARRATIVE: CASE EVENT DATE: 201910
